FAERS Safety Report 10428679 (Version 1)
Quarter: 2014Q3

REPORT INFORMATION
  Report Type: Report from Study
  Country: AU (occurrence: AU)
  Receive Date: 20140903
  Receipt Date: 20140903
  Transmission Date: 20150326
  Serious: Yes (Other)
  Sender: FDA-Public Use
  Company Number: PHHY2014AU111389

PATIENT
  Sex: Male

DRUGS (17)
  1. VENTOLIN CR [Concomitant]
     Dosage: 1 TO 2 DF, Q4H
  2. PREDNISOLONE. [Concomitant]
     Active Substance: PREDNISOLONE
     Dosage: 5 MG, DAILY
  3. SYMBICORT [Concomitant]
     Active Substance: BUDESONIDE\FORMOTEROL FUMARATE DIHYDRATE
     Dosage: 1 TO 2 DF, BID
  4. ACLASTA [Suspect]
     Active Substance: ZOLEDRONIC ACID
     Dosage: 5 MG, DAILY
     Dates: start: 20130217, end: 20130217
  5. GABAPENTIN. [Concomitant]
     Active Substance: GABAPENTIN
     Dosage: 1 DF, QD
  6. KAPANOL [Concomitant]
     Indication: PAIN PROPHYLAXIS
     Dosage: 50 MG, BID
  7. ORDINE [Concomitant]
     Dosage: 3 ML, Q4H
     Route: 048
  8. PHYSIOTENS [Concomitant]
     Active Substance: MOXONIDINE
     Dosage: 1 DF, BID
  9. RENITEC PLUS [Concomitant]
     Dosage: 1 DF, DAILY
  10. ACLASTA [Suspect]
     Active Substance: ZOLEDRONIC ACID
     Dosage: 5 MG, DAILY
     Route: 042
     Dates: start: 20111107, end: 20111107
  11. ENDEP [Concomitant]
     Active Substance: AMITRIPTYLINE HYDROCHLORIDE
     Dosage: 0.5 DF, QD
  12. CELEBREX [Concomitant]
     Active Substance: CELECOXIB
     Indication: ARTHRITIS
     Dosage: 1 DF, QD
  13. PANADOL [Concomitant]
     Active Substance: ACETAMINOPHEN
     Indication: ARTHRALGIA
     Dosage: 2 DF, TID
  14. MOVICOL [Concomitant]
     Active Substance: POLYETHYLENE GLYCOL 3350\POTASSIUM CHLORIDE\SODIUM BICARBONATE\SODIUM CHLORIDE
     Dosage: 1 TO2 DF, DAILY
  15. PREDNISOLONE. [Concomitant]
     Active Substance: PREDNISOLONE
     Dosage: 1 MG, PRN
  16. QUINATE                                 /AUS/ [Concomitant]
     Dosage: 1 TO 2 DF, QD
  17. SOMAC CONTROL [Concomitant]
     Indication: GASTROOESOPHAGEAL REFLUX DISEASE
     Dosage: 40 MG, BID

REACTIONS (4)
  - Pain [Unknown]
  - Hypertension [Unknown]
  - Gastrooesophageal reflux disease [Unknown]
  - Transient ischaemic attack [Unknown]
